FAERS Safety Report 8524167-9 (Version None)
Quarter: 2012Q3

REPORT INFORMATION
  Report Type: 
  Country: None (occurrence: None)
  Receive Date: 20120720
  Receipt Date: 20120717
  Transmission Date: 20120928
  Serious: Yes (Hospitalization, Other)
  Sender: FDA-Public Use
  Company Number: US-PFIZER INC-2012084308

PATIENT
  Sex: Male

DRUGS (20)
  1. COUMADIN [Concomitant]
  2. TERAZOSIN [Concomitant]
  3. OMEPRAZOLE [Concomitant]
  4. LORTAB [Concomitant]
     Indication: PAIN
  5. OXYCONTIN [Suspect]
     Indication: PAIN
     Dosage: UNK, PM
     Route: 065
  6. METOPROLOL [Concomitant]
  7. KAOPECTATE [Concomitant]
  8. SUTENT [Suspect]
     Dosage: 25 MG, 1X/DAY
  9. MORPHINE SULFATE (KADIAN) [Suspect]
     Indication: PAIN
     Route: 065
  10. ZOFRAN [Concomitant]
  11. MIRALAX [Concomitant]
  12. MEGACE [Concomitant]
  13. SUTENT [Suspect]
     Dosage: 50 MG, EVERY OTHER DAY
     Route: 048
     Dates: start: 20120418
  14. SUCRALFATE [Concomitant]
  15. PHENERGAN HCL [Concomitant]
  16. SUTENT [Suspect]
     Indication: METASTATIC RENAL CELL CARCINOMA
     Dosage: 50 MG, 1X/DAY
     Route: 048
     Dates: start: 20120321
  17. LISINOPRIL AND HYDROCHLOROTHIAZIDE [Concomitant]
  18. SIMVASTATIN [Concomitant]
  19. FOLTX [Concomitant]
  20. LASIX [Concomitant]

REACTIONS (24)
  - YELLOW SKIN [None]
  - HALLUCINATION [None]
  - PAIN IN EXTREMITY [None]
  - MUSCULOSKELETAL PAIN [None]
  - WEIGHT DECREASED [None]
  - CONFUSIONAL STATE [None]
  - PAIN [None]
  - HYPONATRAEMIA [None]
  - ASTHENIA [None]
  - AZOTAEMIA [None]
  - DISEASE PROGRESSION [None]
  - FALL [None]
  - DECREASED APPETITE [None]
  - BLOOD PRESSURE ABNORMAL [None]
  - HAEMORRHAGE [None]
  - FATIGUE [None]
  - PYREXIA [None]
  - NAUSEA [None]
  - METASTATIC PAIN [None]
  - HYPERTENSION [None]
  - CONSTIPATION [None]
  - DRUG INTOLERANCE [None]
  - DYSPNOEA [None]
  - RENAL CELL CARCINOMA [None]
